FAERS Safety Report 13017474 (Version 1)
Quarter: 2016Q4

REPORT INFORMATION
  Report Type: Spontaneous
  Country: US (occurrence: US)
  Receive Date: 20161209
  Receipt Date: 20161209
  Transmission Date: 20170207
  Serious: Yes (Hospitalization)
  Sender: FDA-Public Use
  Company Number: None

PATIENT
  Age: 11 Year
  Sex: Male

DRUGS (7)
  1. TABLOID [Concomitant]
     Active Substance: THIOGUANINE
  2. ZOFRAN [Concomitant]
     Active Substance: ONDANSETRON HYDROCHLORIDE
  3. TYLENOL [Concomitant]
     Active Substance: ACETAMINOPHEN
  4. VORICONAZOLE. [Concomitant]
     Active Substance: VORICONAZOLE
  5. SPRYCEL [Suspect]
     Active Substance: DASATINIB
     Indication: NON-HODGKIN^S LYMPHOMA
     Route: 048
     Dates: start: 20160513
  6. BENADRYL [Concomitant]
     Active Substance: DIPHENHYDRAMINE HYDROCHLORIDE
  7. SMZ-TMP [Concomitant]
     Active Substance: SULFAMETHOXAZOLE\TRIMETHOPRIM

REACTIONS (3)
  - Blood count abnormal [None]
  - Gastrointestinal pain [None]
  - Gastrointestinal inflammation [None]

NARRATIVE: CASE EVENT DATE: 201611
